FAERS Safety Report 10694423 (Version 1)
Quarter: 2015Q1

REPORT INFORMATION
  Report Type: Spontaneous
  Country: US (occurrence: US)
  Receive Date: 20150107
  Receipt Date: 20150107
  Transmission Date: 20150721
  Serious: Yes (Other)
  Sender: FDA-Public Use
  Company Number: US-BEH-2014047641

PATIENT
  Age: 27 Year
  Sex: Female

DRUGS (2)
  1. HIZENTRA [Suspect]
     Active Substance: HUMAN IMMUNOGLOBULIN G
     Dates: start: 20141214
  2. HIZENTRA [Suspect]
     Active Substance: HUMAN IMMUNOGLOBULIN G
     Dates: start: 20141207

REACTIONS (4)
  - Atypical pneumonia [Unknown]
  - Pain [Unknown]
  - Arthritis [Unknown]
  - Fatigue [Unknown]

NARRATIVE: CASE EVENT DATE: 201412
